FAERS Safety Report 17056717 (Version 1)
Quarter: 2019Q4

REPORT INFORMATION
  Report Type: Spontaneous
  Country: DE (occurrence: DE)
  Receive Date: 20191121
  Receipt Date: 20191121
  Transmission Date: 20200122
  Serious: Yes (Other)
  Sender: FDA-Public Use
  Company Number: DE-DRREDDYS-GER/GER/19/0116163

PATIENT
  Sex: Female

DRUGS (2)
  1. ZIPRASIDON BETA 40 MG HARTKAPSELN [Suspect]
     Active Substance: ZIPRASIDONE HYDROCHLORIDE
     Route: 048
  2. ZIPRASIDON BETA 40 MG HARTKAPSELN [Suspect]
     Active Substance: ZIPRASIDONE HYDROCHLORIDE
     Indication: PRODUCT USED FOR UNKNOWN INDICATION
     Dosage: HIGH DOSE UNTIL NOW
     Route: 048
     Dates: start: 2014

REACTIONS (1)
  - Glaucoma [Not Recovered/Not Resolved]
